FAERS Safety Report 7488340-3 (Version None)
Quarter: 2011Q2

REPORT INFORMATION
  Report Type: 
  Country: None (occurrence: None)
  Receive Date: 20110518
  Receipt Date: 20110511
  Transmission Date: 20111010
  Serious: Yes (Hospitalization)
  Sender: FDA-Public Use
  Company Number: US-ABBOTT-11P-163-0724989-00

PATIENT
  Sex: Male
  Weight: 108.51 kg

DRUGS (11)
  1. LACTULOSE [Concomitant]
     Indication: PRODUCT USED FOR UNKNOWN INDICATION
     Dates: start: 20070101
  2. LASIX [Concomitant]
     Indication: PRODUCT USED FOR UNKNOWN INDICATION
     Dates: start: 20070101
  3. PREVACID [Concomitant]
     Indication: PRODUCT USED FOR UNKNOWN INDICATION
     Dates: start: 20080101
  4. GABAPENTIN [Concomitant]
     Indication: PRODUCT USED FOR UNKNOWN INDICATION
     Dates: start: 20070101
  5. VICODIN [Suspect]
     Indication: PAIN IN EXTREMITY
     Dosage: 5MG/500MG ONCE
     Route: 048
     Dates: start: 20100716, end: 20100716
  6. POTASSIUM [Concomitant]
     Indication: PRODUCT USED FOR UNKNOWN INDICATION
     Dates: start: 20100601
  7. ALDACTONE [Concomitant]
     Indication: PRODUCT USED FOR UNKNOWN INDICATION
     Dates: start: 20070101
  8. PROPRANOLOL [Concomitant]
     Indication: PRODUCT USED FOR UNKNOWN INDICATION
     Dates: start: 20070101
  9. PLACEBO [Suspect]
     Dosage: 5 ML BLINDED TWICE DAILY
     Route: 048
     Dates: start: 20100723, end: 20100801
  10. PLACEBO [Suspect]
     Indication: HEPATIC ENCEPHALOPATHY
     Dosage: 5 ML BLINDED TWICE DAILY
     Route: 048
     Dates: start: 20100706, end: 20100716
  11. TRAMADOL HCL [Concomitant]
     Indication: PRODUCT USED FOR UNKNOWN INDICATION
     Dates: start: 20070101

REACTIONS (4)
  - HEPATIC ENCEPHALOPATHY [None]
  - VOMITING [None]
  - NAUSEA [None]
  - FALL [None]
